FAERS Safety Report 5942289-3 (Version None)
Quarter: 2008Q4

REPORT INFORMATION
  Report Type: 
  Country: None (occurrence: None)
  Receive Date: 20081105
  Receipt Date: 20081023
  Transmission Date: 20090506
  Serious: Yes (Life-Threatening, Hospitalization)
  Sender: FDA-Public Use
  Company Number: MX-ELI_LILLY_AND_COMPANY-MX200808004056

PATIENT
  Age: 67 Year
  Sex: Male

DRUGS (10)
  1. CYMBALTA [Suspect]
     Indication: DEPRESSION
     Dosage: UNK, UNKNOWN
     Route: 065
     Dates: end: 20041017
  2. OXCARBAZEPINE [Concomitant]
     Dosage: UNK, UNKNOWN
     Route: 065
     Dates: end: 20041017
  3. CRESTOR [Concomitant]
     Dosage: UNK, UNKNOWN
     Route: 065
  4. TRAZODONE HCL [Concomitant]
     Dosage: UNK, UNKNOWN
     Route: 065
     Dates: end: 20041017
  5. GLUCOSAMINE [Concomitant]
     Dosage: UNK, UNKNOWN
     Route: 065
     Dates: end: 20041017
  6. ASPIRIN [Concomitant]
     Dosage: UNK, UNKNOWN
     Route: 065
  7. VALIUM [Concomitant]
     Dosage: 10 MG, UNKNOWN
     Route: 065
     Dates: end: 20041017
  8. TOPIRAMATE [Concomitant]
     Dosage: 25 MG, 2/D
     Route: 065
     Dates: end: 20041017
  9. MELOXICAM [Concomitant]
     Dosage: UNK, UNKNOWN
     Route: 065
     Dates: end: 20041017
  10. SIRDALUD [Concomitant]
     Dosage: UNK, UNKNOWN
     Route: 065
     Dates: end: 20041017

REACTIONS (6)
  - ALCOHOLISM [None]
  - HYPERLIPIDAEMIA [None]
  - HYPERTENSION [None]
  - MANIA [None]
  - PAIN [None]
  - POISONING [None]
